FAERS Safety Report 24743276 (Version 1)
Quarter: 2024Q4

REPORT INFORMATION
  Report Type: Spontaneous
  Country: BE (occurrence: BE)
  Receive Date: 20241217
  Receipt Date: 20241217
  Transmission Date: 20250114
  Serious: Yes (Life-Threatening, Hospitalization)
  Sender: ACCORD
  Company Number: BE-Accord-459594

PATIENT
  Age: 47 Year
  Sex: Male

DRUGS (13)
  1. CARBOPLATIN [Suspect]
     Active Substance: CARBOPLATIN
     Indication: Glioblastoma
     Dosage: 692 MILLIGRAM, SINGLE
     Dates: start: 20240717, end: 20240717
  2. ESCITALOPRAM [Concomitant]
     Active Substance: ESCITALOPRAM OXALATE
     Indication: Glioblastoma
     Dosage: 15MG, ONCE DAILY
     Route: 048
  3. MIRTAZAPINE [Concomitant]
     Active Substance: MIRTAZAPINE
     Indication: Glioblastoma
     Dosage: 100MG, ONCE DAILY
  4. NIFEDIPINE [Concomitant]
     Active Substance: NIFEDIPINE
     Indication: Glioblastoma
     Dosage: 30MG, ONCE DAILY
  5. AMITRIPTYLINE HYDROCHLORIDE [Concomitant]
     Active Substance: AMITRIPTYLINE HYDROCHLORIDE
     Indication: Glioblastoma
     Dosage: 10MG, ONCE DAILY
     Route: 048
  6. EDOXABAN [Concomitant]
     Active Substance: EDOXABAN
     Indication: Embolism
     Dosage: 60MG, ONCE DAILY
     Route: 048
     Dates: start: 20231231, end: 20240702
  7. DAFALGAN [Concomitant]
     Active Substance: ACETAMINOPHEN
     Indication: Headache
     Dosage: 1G, AS NEEDED
     Route: 048
     Dates: start: 20240709
  8. GLYCOSAMINOGLYCANS [Concomitant]
     Active Substance: GLYCOSAMINOGLYCANS
     Indication: Thrombophlebitis
     Dosage: 0.01 G, AS NEEDED
     Route: 061
     Dates: start: 20240709, end: 20240810
  9. PALONOSETRON HYDROCHLORIDE [Concomitant]
     Active Substance: PALONOSETRON HYDROCHLORIDE
     Indication: Prophylaxis of nausea and vomiting
     Dosage: 1 CAPSULE, ONCE ONLY
     Route: 048
     Dates: start: 20240717, end: 20240717
  10. SOLU-MEDROL [Concomitant]
     Active Substance: METHYLPREDNISOLONE SODIUM SUCCINATE
     Indication: Brain oedema
     Dosage: 40MG, 3 TIMES DAILY
     Route: 042
     Dates: start: 20240807, end: 20240809
  11. TRAMADOL [Concomitant]
     Active Substance: TRAMADOL
     Indication: Brain oedema
     Dosage: 50MG, AS NEEDED
     Route: 048
     Dates: start: 20240807, end: 20240808
  12. RIVOTRIL [Concomitant]
     Active Substance: CLONAZEPAM
     Indication: Brain oedema
     Dosage: 0.5 MG, ONCE DAILY
     Route: 048
     Dates: start: 20240807
  13. MEDROL [Concomitant]
     Active Substance: METHYLPREDNISOLONE
     Indication: Brain oedema
     Dosage: 32MG, TWICE DAILY
     Dates: start: 20240809

REACTIONS (1)
  - Brain oedema [Not Recovered/Not Resolved]

NARRATIVE: CASE EVENT DATE: 20240807
